FAERS Safety Report 6518695 (Version 5)
Quarter: 2015Q3

REPORT INFORMATION
  Report Type: Spontaneous
  Country: NP (occurrence: NP)
  Receive Date: 20080103
  Receipt Date: 20150714
  Transmission Date: 20151125
  Serious: Yes (Life-Threatening, Hospitalization)
  Sender: FDA-Public Use
  Company Number: NP-JNJFOC-20071206316

PATIENT
  Age: 45 Year
  Sex: Male

DRUGS (3)
  1. PARACETAMOL [Suspect]
     Active Substance: ACETAMINOPHEN
     Indication: PAIN
     Dosage: X 2 DAYS
     Route: 048
  2. PARACETAMOL [Suspect]
     Active Substance: ACETAMINOPHEN
     Indication: HEADACHE
     Dosage: X 2 DAYS
     Route: 048
  3. PARACETAMOL [Suspect]
     Active Substance: ACETAMINOPHEN
     Indication: PYREXIA
     Dosage: X 2 DAYS
     Route: 048

REACTIONS (10)
  - Jaundice [Recovered/Resolved]
  - Brain oedema [None]
  - Acute hepatic failure [Recovered/Resolved]
  - Splenomegaly [None]
  - Oedema peripheral [None]
  - Hepatic encephalopathy [None]
  - Accidental overdose [Recovered/Resolved]
  - Stupor [Recovered/Resolved]
  - Coma [Recovered/Resolved]
  - Hypoglycaemia [None]
